FAERS Safety Report 5049070-0 (Version None)
Quarter: 2006Q2

REPORT INFORMATION
  Report Type: 
  Country: None (occurrence: None)
  Receive Date: 20060601
  Receipt Date: 20060303
  Transmission Date: 20061013
  Serious: No
  Sender: FDA-Public Use
  Company Number: US200603001214

PATIENT
  Age: 44 Year
  Sex: Male

DRUGS (3)
  1. CYMBALTA [Suspect]
     Indication: BACK PAIN
     Dosage: 20 MG
     Dates: start: 20060217, end: 20060218
  2. DURAGESIC-100 [Concomitant]
  3. AMBIEN [Concomitant]

REACTIONS (6)
  - ADVERSE DRUG REACTION [None]
  - ASTHENIA [None]
  - DRY MOUTH [None]
  - HEADACHE [None]
  - MALAISE [None]
  - NAUSEA [None]
